FAERS Safety Report 15523778 (Version 1)
Quarter: 2018Q4

REPORT INFORMATION
  Report Type: Spontaneous
  Country: GB (occurrence: DK)
  Receive Date: 20181019
  Receipt Date: 20181019
  Transmission Date: 20190205
  Serious: Yes (Hospitalization, Disabling)
  Sender: FDA-Public Use
  Company Number: DK-FRESENIUS KABI-FK201810857

PATIENT
  Age: 67 Year
  Sex: Female

DRUGS (6)
  1. PIPERACILLIN SODIUM/TAZOBACTAM SODIUM [Suspect]
     Active Substance: PIPERACILLIN SODIUM\TAZOBACTAM SODIUM
     Indication: PYELONEPHRITIS
     Dosage: UNKNOWN
     Route: 065
     Dates: start: 201603, end: 20160405
  2. AMPICILLIN [Suspect]
     Active Substance: AMPICILLIN
     Indication: BACTERIAL INFECTION
     Dosage: UNKNOWN
     Route: 065
     Dates: start: 20160327
  3. CIPROFLOXACIN. [Concomitant]
     Active Substance: CIPROFLOXACIN
     Indication: PRODUCT USED FOR UNKNOWN INDICATION
     Dosage: UNKNOWN
     Route: 065
     Dates: start: 20160328
  4. VANCOMYCIN (MANUFACTURER UNKNOWN) [Suspect]
     Active Substance: VANCOMYCIN
     Indication: PYELONEPHRITIS
     Dosage: UNKNOWN
     Route: 065
     Dates: start: 20160405
  5. DICLOXACILLIN SODIUM MONOHYDRATE [Suspect]
     Active Substance: DICLOXACILLIN SODIUM
     Indication: WOUND TREATMENT
     Dosage: UNKNOWN
     Route: 065
     Dates: start: 20160318
  6. GENTAMICIN SULFATE. [Suspect]
     Active Substance: GENTAMICIN SULFATE
     Indication: BACTERIAL INFECTION
     Dosage: UNKNOWN
     Route: 065
     Dates: start: 20160327

REACTIONS (3)
  - Blood creatinine increased [Unknown]
  - Acute kidney injury [Unknown]
  - Tubulointerstitial nephritis [Recovered/Resolved]

NARRATIVE: CASE EVENT DATE: 2016
